FAERS Safety Report 8991191 (Version 1)
Quarter: 2012Q4

REPORT INFORMATION
  Report Type: Spontaneous
  Country: US (occurrence: None)
  Receive Date: 20121227
  Receipt Date: 20121227
  Transmission Date: 20130627
  Serious: No
  Sender: FDA-Public Use
  Company Number: None

PATIENT
  Age: 90 Year
  Sex: Female
  Weight: 72.58 kg

DRUGS (1)
  1. VESICARE [Suspect]
     Indication: URINATION FREQUENCY OF
     Dosage: 5mg 1 daily po
     Route: 048

REACTIONS (2)
  - Mental disorder [None]
  - Depression suicidal [None]
